FAERS Safety Report 16481973 (Version 2)
Quarter: 2019Q3

REPORT INFORMATION
  Report Type: Report from Study
  Country: ZA (occurrence: ZA)
  Receive Date: 20190627
  Receipt Date: 20190909
  Transmission Date: 20191004
  Serious: Yes (Hospitalization, Disabling, Other)
  Sender: FDA-Public Use
  Company Number: ZA-SA-2019SA099855

PATIENT
  Age: 62 Year
  Sex: Female

DRUGS (8)
  1. INSULIN GLULISINE [Suspect]
     Active Substance: INSULIN GLULISINE
     Dosage: BB-28 U, BL- 30 U, BS- 30 U
     Dates: start: 20190408
  2. INSULIN GLARGINE [Suspect]
     Active Substance: INSULIN GLARGINE
     Dosage: 80 U, HS
     Dates: start: 20190408
  3. DIAGLUCIDE [Concomitant]
     Active Substance: GLICLAZIDE
     Dosage: 120 MG, QD
     Dates: start: 19980409
  4. ECOTRIN [Concomitant]
     Active Substance: ASPIRIN
     Dosage: 81 MG, QD
     Dates: start: 19980409
  5. CO-TAREG [Concomitant]
     Active Substance: HYDROCHLOROTHIAZIDE\VALSARTAN
     Dosage: 160 MG, QD
     Dates: start: 20140409
  6. GLUCOPHAGE [Concomitant]
     Active Substance: METFORMIN HYDROCHLORIDE
     Dosage: 1000 MG, BID AT AS (AFETR SUPPER), AB (AFTER BREAKFAST)
     Dates: start: 19980409
  7. INSULIN GLARGINE [Suspect]
     Active Substance: INSULIN GLARGINE
     Dosage: 40 UNITS BEFORE SUPPER AND 40 UNITS AT BED TIME
     Dates: start: 20190520
  8. AMLOC [AMLODIPINE BESILATE] [Concomitant]
     Active Substance: AMLODIPINE BESYLATE
     Dosage: 10 MG, BID
     Dates: start: 20140409

REACTIONS (12)
  - Pain [Not Recovered/Not Resolved]
  - Dizziness [Not Recovered/Not Resolved]
  - Phantom limb syndrome [Not Recovered/Not Resolved]
  - Wrong technique in product usage process [Unknown]
  - Incorrect route of product administration [Unknown]
  - Leg amputation [Not Recovered/Not Resolved]
  - Glycosylated haemoglobin increased [Unknown]
  - Lung infection [Not Recovered/Not Resolved]
  - Gastroenteritis viral [Unknown]
  - Scleroderma [Not Recovered/Not Resolved]
  - Bronchitis [Unknown]
  - Blood glucose fluctuation [Not Recovered/Not Resolved]

NARRATIVE: CASE EVENT DATE: 20190506
